FAERS Safety Report 18117725 (Version 2)
Quarter: 2020Q3

REPORT INFORMATION
  Report Type: Report from Study
  Country: GB (occurrence: GB)
  Receive Date: 20200806
  Receipt Date: 20200907
  Transmission Date: 20201103
  Serious: No
  Sender: FDA-Public Use
  Company Number: GB-SAMSUNG BIOEPIS-SB-2020-24147

PATIENT
  Age: 51 Year
  Sex: Female

DRUGS (1)
  1. IMRALDI [Suspect]
     Active Substance: ADALIMUMAB
     Indication: RHEUMATOID ARTHRITIS
     Route: 058

REACTIONS (6)
  - Depressed mood [Unknown]
  - Dyspnoea [Unknown]
  - Product use issue [Unknown]
  - Condition aggravated [Unknown]
  - Disturbance in attention [Unknown]
  - Influenza like illness [Unknown]
